FAERS Safety Report 21594580 (Version 1)
Quarter: 2022Q4

REPORT INFORMATION
  Report Type: Spontaneous
  Country: US (occurrence: US)
  Receive Date: 20221115
  Receipt Date: 20221115
  Transmission Date: 20230113
  Serious: No
  Sender: FDA-Public Use
  Company Number: US-002147023-NVSC2022US253801

PATIENT
  Age: 58 Year
  Sex: Male

DRUGS (1)
  1. LEQVIO [Suspect]
     Active Substance: INCLISIRAN SODIUM
     Indication: Arteriosclerosis
     Dosage: 284 MG, OTHER
     Route: 065
     Dates: start: 20221028, end: 20221028

REACTIONS (3)
  - Pain [Unknown]
  - Fatigue [Unknown]
  - Hypersomnia [Unknown]
